FAERS Safety Report 6567133-5 (Version None)
Quarter: 2010Q1

REPORT INFORMATION
  Report Type: 
  Country: None (occurrence: None)
  Receive Date: 20100202
  Receipt Date: 20100125
  Transmission Date: 20100710
  Serious: Yes (Other)
  Sender: FDA-Public Use
  Company Number: BR-SANOFI-AVENTIS-2010SA004961

PATIENT
  Sex: Female

DRUGS (9)
  1. LANTUS [Suspect]
     Dosage: 38 IU IN THE MORNING AND 20 IU AT NIGHT
     Route: 058
  2. OPTIPEN [Suspect]
     Route: 058
  3. APIDRA [Suspect]
     Dosage: ACCORDING TO GLYCEMIA
     Route: 058
  4. ENALAPRIL MALEATE [Concomitant]
     Indication: BLOOD PRESSURE
     Route: 048
  5. CRESTOR [Concomitant]
     Route: 048
  6. ACETYLSALICYLIC ACID [Concomitant]
     Route: 048
  7. OLCADIL [Concomitant]
     Route: 048
  8. ANASTROZOLE [Concomitant]
     Route: 048
  9. LASILACTONA [Concomitant]
     Route: 048

REACTIONS (4)
  - BLOOD GLUCOSE INCREASED [None]
  - BREAST CANCER [None]
  - DIZZINESS [None]
  - FEELING ABNORMAL [None]
